FAERS Safety Report 17042434 (Version 5)
Quarter: 2020Q2

REPORT INFORMATION
  Report Type: Report from Study
  Country: None (occurrence: US)
  Receive Date: 20191118
  Receipt Date: 20200514
  Transmission Date: 20200713
  Serious: Yes (Hospitalization)
  Sender: FDA-Public Use
  Company Number: US-ABBVIE-19P-163-2998339-00

PATIENT
  Age: 76 Year
  Sex: Female
  Weight: 63 kg

DRUGS (12)
  1. ASPIRIN. [Concomitant]
     Active Substance: ASPIRIN
     Indication: PAIN PROPHYLAXIS
     Route: 048
     Dates: start: 20141013
  2. ALLOPURINOL. [Concomitant]
     Active Substance: ALLOPURINOL
     Indication: PROPHYLAXIS
     Route: 048
     Dates: start: 20151002
  3. MULTIVITAMIN [Concomitant]
     Active Substance: VITAMINS
     Indication: VITAMIN SUPPLEMENTATION
     Route: 048
     Dates: start: 20141013
  4. VENETOCLAX. [Suspect]
     Active Substance: VENETOCLAX
     Route: 048
     Dates: start: 20151013, end: 20151019
  5. VENETOCLAX. [Suspect]
     Active Substance: VENETOCLAX
     Route: 048
     Dates: start: 20191115
  6. DEXAMETHASONE. [Concomitant]
     Active Substance: DEXAMETHASONE
     Indication: DISEASE PROGRESSION
     Route: 048
     Dates: start: 20181208
  7. VENETOCLAX. [Suspect]
     Active Substance: VENETOCLAX
     Route: 048
     Dates: start: 20151020, end: 20191026
  8. METOPROLOL. [Concomitant]
     Active Substance: METOPROLOL
     Indication: TACHYARRHYTHMIA
     Route: 048
     Dates: start: 20141013
  9. DEXAMETHASONE. [Concomitant]
     Active Substance: DEXAMETHASONE
     Indication: DISEASE PROGRESSION
  10. VENETOCLAX. [Suspect]
     Active Substance: VENETOCLAX
     Indication: PLASMA CELL MYELOMA
     Route: 048
     Dates: start: 20151006, end: 20151012
  11. LEVOFLOXACIN. [Concomitant]
     Active Substance: LEVOFLOXACIN
     Indication: SEPSIS
     Route: 048
     Dates: start: 20190623
  12. CALCIUM 500 WITH D TABLET [Concomitant]
     Indication: OSTEOPOROSIS
     Dosage: 500MG CALCIUM, 800IU VIT D
     Route: 048
     Dates: start: 20141013

REACTIONS (1)
  - Streptococcal sepsis [Recovered/Resolved]

NARRATIVE: CASE EVENT DATE: 20191026
